FAERS Safety Report 23678473 (Version 1)
Quarter: 2024Q1

REPORT INFORMATION
  Report Type: Spontaneous
  Country: US (occurrence: US)
  Receive Date: 20240327
  Receipt Date: 20240327
  Transmission Date: 20240410
  Serious: No
  Sender: FDA-Public Use
  Company Number: US-BAYER-2024A042847

PATIENT
  Sex: Female

DRUGS (1)
  1. ESTRADIOL [Suspect]
     Active Substance: ESTRADIOL
     Dosage: 0.05 MG/1D 4TTSM
     Route: 062

REACTIONS (3)
  - Application site rash [Recovered/Resolved]
  - Product packaging issue [None]
  - Product adhesion issue [None]
